FAERS Safety Report 24634035 (Version 2)
Quarter: 2025Q2

REPORT INFORMATION
  Report Type: Report from Study
  Country: US (occurrence: US)
  Receive Date: 20241119
  Receipt Date: 20250408
  Transmission Date: 20250716
  Serious: Yes (Other)
  Sender: ABBVIE
  Company Number: US-ABBVIE-6005335

PATIENT
  Sex: Male

DRUGS (1)
  1. SKYRIZI [Suspect]
     Active Substance: RISANKIZUMAB-RZAA
     Indication: Psoriasis
     Route: 058
     Dates: start: 20230406

REACTIONS (7)
  - Aortic valve replacement [Recovering/Resolving]
  - Gastrointestinal infection [Recovering/Resolving]
  - Medical procedure [Recovering/Resolving]
  - Intestinal sepsis [Recovering/Resolving]
  - Medical device implantation [Recovering/Resolving]
  - Pneumonia [Unknown]
  - Weight decreased [Unknown]
